FAERS Safety Report 22263065 (Version 2)
Quarter: 2023Q2

REPORT INFORMATION
  Report Type: Report from Study
  Country: GR (occurrence: GR)
  Receive Date: 20230428
  Receipt Date: 20230505
  Transmission Date: 20230721
  Serious: Yes (Hospitalization, Other)
  Sender: FDA-Public Use
  Company Number: GR-CELLTRION INC.-2023GR008652

PATIENT

DRUGS (21)
  1. RITUXIMAB [Suspect]
     Active Substance: RITUXIMAB
     Indication: Diffuse large B-cell lymphoma
     Dosage: 17.85 MG/M2, EVERY 3 WEEK
     Route: 042
     Dates: start: 20220928, end: 20220928
  2. HYALURONIDASE (HUMAN RECOMBINANT)\RITUXIMAB [Suspect]
     Active Substance: HYALURONIDASE (HUMAN RECOMBINANT)\RITUXIMAB
     Indication: Diffuse large B-cell lymphoma
     Dosage: 66.66 MG, EVERY 3 WEEK (ON 25/JAN/2023, RECEIVED MOST RECENT OF SUBCUTANEOUS RITUXIMAB (1400 MG))
     Route: 058
     Dates: start: 20230125, end: 20230125
  3. CYCLOPHOSPHAMIDE [Suspect]
     Active Substance: CYCLOPHOSPHAMIDE
     Indication: Diffuse large B-cell lymphoma
     Dosage: 35.71 MG/M2, EVERY 3 WEEK (ON 25/JAN/2023, RECEIVED MOST RECENT OF CYCLOPHOSPHAMIDE)
     Route: 042
     Dates: start: 20220928, end: 20220928
  4. CYCLOPHOSPHAMIDE [Suspect]
     Active Substance: CYCLOPHOSPHAMIDE
     Dosage: 67.85 MG/M2, EVERY 3 WEEK
     Route: 042
     Dates: start: 20230125, end: 20230125
  5. DOXORUBICIN [Suspect]
     Active Substance: DOXORUBICIN
     Indication: Diffuse large B-cell lymphoma
     Dosage: 2.38 MG/M2, EVERY 3 WEEK (ON 25/JAN/2023, RECEIVED MOST RECENT OF DOXORUBICIN (71.3 MG).)
     Route: 042
     Dates: start: 20220928, end: 20220928
  6. DOXORUBICIN [Suspect]
     Active Substance: DOXORUBICIN
     Dosage: EVERY 3 WEEK
     Route: 042
     Dates: start: 20230125, end: 20230125
  7. VINCRISTINE [Suspect]
     Active Substance: VINCRISTINE
     Indication: Diffuse large B-cell lymphoma
     Dosage: 0.06 MG/M2, EVERY 3 WEEK
     Route: 042
     Dates: start: 20230125, end: 20230125
  8. VINCRISTINE [Suspect]
     Active Substance: VINCRISTINE
     Dosage: 0.07 MG/M2, EVERY 3 WEEK (ON 25/JAN/2023, RECEIVED MOST RECENT OF VINCRISTINE (0.7 MG/M2).)
     Route: 042
     Dates: start: 20220928, end: 20220928
  9. PREDNISONE [Suspect]
     Active Substance: PREDNISONE
     Indication: Diffuse large B-cell lymphoma
     Dosage: 100 MG, EVERY 1 DAY (ON 29/JAN/2023, RECEIVED MOST RECENT OF PREDNISONE.)
     Route: 048
     Dates: start: 20220928, end: 20230129
  10. JANUMET [Concomitant]
     Active Substance: METFORMIN HYDROCHLORIDE\SITAGLIPTIN PHOSPHATE
     Indication: Diabetes mellitus
     Dosage: EVERY 0.5 DAY
  11. LEVOCETIRIZINE [Concomitant]
     Active Substance: LEVOCETIRIZINE
     Indication: Rash maculo-papular
     Dosage: 10 MG, EVERY 0.5 DAY
     Dates: start: 20221006, end: 20221026
  12. EZETIMIBE [Concomitant]
     Active Substance: EZETIMIBE
     Indication: Dyslipidaemia
     Dosage: EVERY 1 DAY
  13. ALLOPURINOL [Concomitant]
     Active Substance: ALLOPURINOL
     Dosage: 300 MG, EVERY 0.09 DAY
     Dates: start: 20220928
  14. SULFAMETHOXAZOLE\TRIMETHOPRIM [Concomitant]
     Active Substance: SULFAMETHOXAZOLE\TRIMETHOPRIM
     Dosage: EVERY 2 DAY
     Dates: start: 20220928
  15. PEGFILGRASTIM [Concomitant]
     Active Substance: PEGFILGRASTIM
     Dosage: 6 MG
     Dates: start: 20220929, end: 20220929
  16. HYDROCORTISONE [Concomitant]
     Active Substance: HYDROCORTISONE
     Indication: Hypotension
     Dosage: 20 G, EVERY 1 DAY
     Dates: start: 20221004
  17. CRESTOR [Concomitant]
     Active Substance: ROSUVASTATIN CALCIUM
     Indication: Dyslipidaemia
     Dosage: 10 MG, EVERY 1 DAY
  18. DUPHALAC [Concomitant]
     Active Substance: LACTULOSE
     Indication: Constipation
     Dosage: EVERY 0.5 DAY
     Dates: start: 20221026
  19. ASPIRIN [Concomitant]
     Active Substance: ASPIRIN
     Dosage: 100 MG, EVERY 1 DAY
     Dates: start: 20220928, end: 20221029
  20. GLUCOPHAGE [Concomitant]
     Active Substance: METFORMIN HYDROCHLORIDE
     Indication: Diabetes mellitus
     Dosage: 850 MG, EVERY 1 DAY
  21. VALTREX [Concomitant]
     Active Substance: VALACYCLOVIR HYDROCHLORIDE
     Dosage: 500 MG, EVERY 1 DAY
     Dates: start: 20220928

REACTIONS (2)
  - Febrile neutropenia [Recovered/Resolved]
  - Underdose [Unknown]

NARRATIVE: CASE EVENT DATE: 20221029
